FAERS Safety Report 12610231 (Version 2)
Quarter: 2016Q3

REPORT INFORMATION
  Report Type: Spontaneous
  Country: IT (occurrence: IT)
  Receive Date: 20160801
  Receipt Date: 20160805
  Transmission Date: 20161109
  Serious: Yes (Life-Threatening)
  Sender: FDA-Public Use
  Company Number: IT-MYLANLABS-2016M1030729

PATIENT

DRUGS (4)
  1. ALLOPURINOL. [Concomitant]
     Active Substance: ALLOPURINOL
     Indication: PRODUCT USED FOR UNKNOWN INDICATION
  2. LOSARTAN. [Concomitant]
     Active Substance: LOSARTAN
     Indication: PRODUCT USED FOR UNKNOWN INDICATION
  3. METFORMIN [Suspect]
     Active Substance: METFORMIN HYDROCHLORIDE
     Indication: DIABETES MELLITUS
     Dosage: 1 G, CYCLE
     Route: 048
  4. QUETIAPINE. [Concomitant]
     Active Substance: QUETIAPINE
     Indication: PRODUCT USED FOR UNKNOWN INDICATION

REACTIONS (2)
  - Acute kidney injury [Recovered/Resolved]
  - Lactic acidosis [Recovered/Resolved]

NARRATIVE: CASE EVENT DATE: 20160709
